FAERS Safety Report 10188262 (Version 1)
Quarter: 2014Q2

REPORT INFORMATION
  Report Type: Spontaneous
  Country: US (occurrence: None)
  Receive Date: 20140521
  Receipt Date: 20140521
  Transmission Date: 20141212
  Serious: No
  Sender: FDA-Public Use
  Company Number: None

PATIENT
  Age: 75 Year
  Sex: Male
  Weight: 101.15 kg

DRUGS (1)
  1. VICTOZA 18 MG/ 3ML [Suspect]
     Indication: DIABETES MELLITUS
     Dosage: 1.8 MG TWICE A DAY, TWICE DAILY, GIVEN INTO/UNDER THE SKIN
     Dates: start: 20131130, end: 20140427

REACTIONS (3)
  - Nausea [None]
  - Dysgeusia [None]
  - Weight decreased [None]
